FAERS Safety Report 7415948-3 (Version None)
Quarter: 2011Q2

REPORT INFORMATION
  Report Type: 
  Country: None (occurrence: None)
  Receive Date: 20110414
  Receipt Date: 20110405
  Transmission Date: 20111010
  Serious: Yes (Hospitalization, Other)
  Sender: FDA-Public Use
  Company Number: PHHY2011GB27629

PATIENT
  Age: 83 Year
  Sex: Female

DRUGS (5)
  1. BENDROFLUMETHIAZIDE [Concomitant]
     Dosage: 2.5 MG, QD
  2. FUROSEMIDE [Concomitant]
     Dosage: 80 MG, QD
  3. OMEPRAZOLE [Suspect]
     Dosage: 20 MG, QD
     Dates: start: 20030101, end: 20091001
  4. ALFACALCIDOL [Concomitant]
     Dosage: 250 MG, QD
  5. AMLODIPINE [Concomitant]

REACTIONS (20)
  - CEREBRAL INFARCTION [None]
  - BLOOD PARATHYROID HORMONE INCREASED [None]
  - MUSCLE SPASMS [None]
  - PRESYNCOPE [None]
  - DIARRHOEA [None]
  - DEPRESSION [None]
  - DECREASED APPETITE [None]
  - PAIN IN EXTREMITY [None]
  - VOMITING [None]
  - HYPOMAGNESAEMIA [None]
  - EPILEPSY [None]
  - HYPERTENSION [None]
  - ASTHENIA [None]
  - HIP FRACTURE [None]
  - CEREBROVASCULAR DISORDER [None]
  - HYPOCALCAEMIA [None]
  - WEIGHT DECREASED [None]
  - MALAISE [None]
  - LOSS OF CONSCIOUSNESS [None]
  - FALL [None]
